FAERS Safety Report 9302609 (Version 4)
Quarter: 2013Q3

REPORT INFORMATION
  Report Type: Report from Study
  Country: DE (occurrence: DE)
  Receive Date: 20130522
  Receipt Date: 20130826
  Transmission Date: 20140515
  Serious: Yes (Hospitalization)
  Sender: FDA-Public Use
  Company Number: DE-ROCHE-1227106

PATIENT
  Age: 70 Year
  Sex: Male
  Weight: 106 kg

DRUGS (1)
  1. RITUXIMAB [Suspect]
     Indication: RHEUMATOID ARTHRITIS
     Route: 065
     Dates: start: 20130222

REACTIONS (5)
  - Hypertensive crisis [Recovered/Resolved]
  - Renal artery stenosis [Not Recovered/Not Resolved]
  - Acute endocarditis [Recovered/Resolved]
  - Transient ischaemic attack [Recovered/Resolved]
  - Endocarditis [Recovered/Resolved]
